FAERS Safety Report 24801010 (Version 2)
Quarter: 2025Q1

REPORT INFORMATION
  Report Type: Spontaneous
  Country: PH (occurrence: PH)
  Receive Date: 20250102
  Receipt Date: 20250211
  Transmission Date: 20250408
  Serious: Yes (Hospitalization, Other)
  Sender: BOEHRINGER INGELHEIM
  Company Number: PH-BoehringerIngelheim-2025-BI-000040

PATIENT
  Age: 95 Year
  Sex: Female

DRUGS (1)
  1. PRADAXA [Suspect]
     Active Substance: DABIGATRAN ETEXILATE MESYLATE
     Indication: Atrial fibrillation
     Dosage: 2X 110MG

REACTIONS (6)
  - Tracheal haemorrhage [Unknown]
  - Contusion [Unknown]
  - Dyspnoea [Unknown]
  - Pneumonia [Unknown]
  - Atelectasis [Unknown]
  - Muscle strain [Unknown]
